FAERS Safety Report 7014484-6 (Version None)
Quarter: 2010Q3

REPORT INFORMATION
  Report Type: 
  Country: None (occurrence: None)
  Receive Date: 20100927
  Receipt Date: 20100913
  Transmission Date: 20110219
  Serious: Yes (Other)
  Sender: FDA-Public Use
  Company Number: US-ELI_LILLY_AND_COMPANY-US201009004710

PATIENT
  Age: 64 Year
  Sex: Female

DRUGS (8)
  1. FORTEO [Suspect]
     Indication: OSTEOPOROSIS
     Dosage: 20 UG, UNK
     Route: 058
     Dates: start: 20100101
  2. FENTANYL [Concomitant]
  3. TOPAMAX [Concomitant]
  4. NEXIUM [Concomitant]
  5. LYRICA [Concomitant]
  6. NORTRIPTYLINE HCL [Concomitant]
  7. MIRTAZAPINE [Concomitant]
  8. VITAMIN B-12 [Concomitant]

REACTIONS (2)
  - LOSS OF CONSCIOUSNESS [None]
  - MIGRAINE [None]
